FAERS Safety Report 9323238 (Version 1)
Quarter: 2013Q2

REPORT INFORMATION
  Report Type: Spontaneous
  Country: US (occurrence: US)
  Receive Date: 20130603
  Receipt Date: 20130603
  Transmission Date: 20140414
  Serious: No
  Sender: FDA-Public Use
  Company Number: US-009507513-1305USA017577

PATIENT
  Sex: Female

DRUGS (4)
  1. REBETOL [Suspect]
     Indication: HEPATITIS C
     Dosage: 5 A DAY
     Route: 048
     Dates: start: 20121026, end: 201301
  2. REBETOL [Suspect]
     Dosage: 3 A DAY
     Route: 048
     Dates: start: 201301
  3. VICTRELIS [Suspect]
     Indication: HEPATITIS C
     Dosage: UNK
     Route: 048
     Dates: start: 20121129
  4. PEGASYS [Suspect]
     Indication: HEPATITIS C
     Dosage: UNK
     Dates: start: 20121031

REACTIONS (3)
  - Fatigue [Unknown]
  - Anaemia [Unknown]
  - Haemoglobin decreased [Unknown]
